FAERS Safety Report 6682943-1 (Version None)
Quarter: 2010Q2

REPORT INFORMATION
  Report Type: 
  Country: None (occurrence: None)
  Receive Date: 20100413
  Receipt Date: 20100330
  Transmission Date: 20101027
  Serious: Yes (Hospitalization)
  Sender: FDA-Public Use
  Company Number: A-US2010-35323

PATIENT
  Age: 40 Year
  Sex: Female

DRUGS (1)
  1. TRACLEER [Suspect]
     Indication: PULMONARY ARTERIAL HYPERTENSION
     Dosage: ORAL
     Route: 048
     Dates: start: 20020212

REACTIONS (4)
  - CONDITION AGGRAVATED [None]
  - GASTRIC BYPASS [None]
  - HEPATIC ENZYME INCREASED [None]
  - WEIGHT INCREASED [None]
